FAERS Safety Report 5670819-8 (Version None)
Quarter: 2008Q2

REPORT INFORMATION
  Report Type: 
  Country: None (occurrence: None)
  Receive Date: 20080305
  Receipt Date: 20071005
  Transmission Date: 20081010
  Serious: Yes (Other)
  Sender: FDA-Public Use
  Company Number: BDI-010310

PATIENT
  Age: 62 Year
  Sex: Female

DRUGS (2)
  1. ISOVUE-370 [Suspect]
     Indication: ARTERIOGRAM CORONARY
     Dosage: INTRA-ARTERIAL
     Route: 013
     Dates: start: 20071004, end: 20071004
  2. ISOVUE-370 [Suspect]
     Indication: CHEST PAIN
     Dosage: INTRA-ARTERIAL
     Route: 013
     Dates: start: 20071004, end: 20071004

REACTIONS (1)
  - TRANSIENT ISCHAEMIC ATTACK [None]
